FAERS Safety Report 9236451 (Version 1)
Quarter: 2013Q2

REPORT INFORMATION
  Report Type: Spontaneous
  Country: FR (occurrence: None)
  Receive Date: 20130415
  Receipt Date: 20130415
  Transmission Date: 20140414
  Serious: Yes (Death)
  Sender: FDA-Public Use
  Company Number: KAD201302-000169

PATIENT
  Sex: 0

DRUGS (3)
  1. RIBAVIRIN (RIBAVIRIN) [Suspect]
     Indication: HEPATITIS C
  2. PEGINTERFERON ALFA-2A [Suspect]
     Indication: HEPATITIS C
  3. PLACEBO (PLACEBO) [Suspect]
     Indication: HEPATITIS C

REACTIONS (3)
  - Pancytopenia [None]
  - Metabolic acidosis [None]
  - Drug effect decreased [None]
